FAERS Safety Report 16413166 (Version 1)
Quarter: 2019Q2

REPORT INFORMATION
  Report Type: Spontaneous
  Country: ES (occurrence: ES)
  Receive Date: 20190611
  Receipt Date: 20190611
  Transmission Date: 20190711
  Serious: Yes (Other)
  Sender: FDA-Public Use
  Company Number: ES-ROCHE-2333232

PATIENT
  Age: 70 Year
  Sex: Female

DRUGS (10)
  1. LANSOPRAZOLE. [Concomitant]
     Active Substance: LANSOPRAZOLE
  2. SIMVASTATINA [Concomitant]
     Active Substance: SIMVASTATIN
  3. ZOLPIDEM [Concomitant]
     Active Substance: ZOLPIDEM\ZOLPIDEM TARTRATE
  4. GABAPENTINA [Concomitant]
     Active Substance: GABAPENTIN
  5. FENTANILO [FENTANYL] [Concomitant]
     Route: 062
  6. BEVACIZUMAB. [Suspect]
     Active Substance: BEVACIZUMAB
     Indication: PRODUCT USED FOR UNKNOWN INDICATION
     Route: 042
     Dates: start: 20170802, end: 20190221
  7. LORAZEPAM. [Concomitant]
     Active Substance: LORAZEPAM
  8. CITALOPRAM [Concomitant]
     Active Substance: CITALOPRAM HYDROBROMIDE
  9. DOLOCATIL [Concomitant]
     Active Substance: ACETAMINOPHEN
  10. CALCIFEDIOL [Concomitant]
     Active Substance: CALCIFEDIOL

REACTIONS (2)
  - Vasculitic ulcer [Recovering/Resolving]
  - Septal panniculitis [Recovering/Resolving]

NARRATIVE: CASE EVENT DATE: 20190131
